FAERS Safety Report 6147900-2 (Version None)
Quarter: 2009Q2

REPORT INFORMATION
  Report Type: 
  Country: None (occurrence: None)
  Receive Date: 20090403
  Receipt Date: 20090324
  Transmission Date: 20091009
  Serious: Yes (Other)
  Sender: FDA-Public Use
  Company Number: ES-1168959

PATIENT

DRUGS (2)
  1. BSS PLUS [Suspect]
     Indication: VITRECTOMY
     Dosage: 500 ML,  INTRAOCULAR
     Route: 031
  2. EPINEPHRINE [Concomitant]

REACTIONS (4)
  - ENDOPHTHALMITIS [None]
  - EYE IRRITATION [None]
  - POSTERIOR CAPSULE OPACIFICATION [None]
  - PRODUCT QUALITY ISSUE [None]
